FAERS Safety Report 11131949 (Version 1)
Quarter: 2015Q2

REPORT INFORMATION
  Report Type: Report from Study
  Country: FR (occurrence: FR)
  Receive Date: 20150522
  Receipt Date: 20150522
  Transmission Date: 20150821
  Serious: Yes (Hospitalization)
  Sender: FDA-Public Use
  Company Number: FR-GLAXOSMITHKLINE-FR2015GSK070128

PATIENT
  Age: 45 Year
  Sex: Male

DRUGS (6)
  1. TENORMIN [Concomitant]
     Active Substance: ATENOLOL
  2. KARDEGIC [Concomitant]
     Active Substance: ASPIRIN LYSINE
  3. OMEGA-3-ACID ETHYL ESTERS. [Suspect]
     Active Substance: OMEGA-3-ACID ETHYL ESTERS
     Indication: ISCHAEMIC HEART DISEASE PROPHYLAXIS
     Dosage: UNK
     Dates: start: 20060703, end: 20120615
  4. TAHOR [Concomitant]
     Active Substance: ATORVASTATIN CALCIUM
  5. COVERSYL [Concomitant]
     Active Substance: PERINDOPRIL
  6. PLAVIX [Concomitant]
     Active Substance: CLOPIDOGREL BISULFATE

REACTIONS (2)
  - Tendonitis [Unknown]
  - Adverse event [Unknown]

NARRATIVE: CASE EVENT DATE: 20150303
